FAERS Safety Report 8267574-4 (Version None)
Quarter: 2012Q2

REPORT INFORMATION
  Report Type: 
  Country: None (occurrence: None)
  Receive Date: 20120404
  Receipt Date: 20120323
  Transmission Date: 20120825
  Serious: Yes (Other)
  Sender: FDA-Public Use
  Company Number: DKLU1078004

PATIENT
  Age: 18 Year
  Sex: Female

DRUGS (11)
  1. ONFI [Suspect]
     Indication: EPILEPSY
     Dosage: 10 MG MILLIGRAM(S), 2 IN 1 D, ORAL, 25 MG MILLIGRAM(S), 1 IN 1 D, ORAL
     Route: 048
     Dates: start: 20100210
  2. ONFI [Suspect]
     Indication: EPILEPSY
     Dosage: 10 MG MILLIGRAM(S), 2 IN 1 D, ORAL, 25 MG MILLIGRAM(S), 1 IN 1 D, ORAL
     Route: 048
     Dates: start: 20020703, end: 20100210
  3. DOMPERIDONE (DOMPERIDONE) [Concomitant]
  4. LUTENYL (NOMEGESTROL ACETATE) [Concomitant]
  5. LANSOYL (PARAFFIN, LIQUID) [Concomitant]
  6. TRILEPTAL [Concomitant]
  7. ACETAMINOPHEN [Concomitant]
  8. LAMOTRIGINE [Suspect]
     Indication: EPILEPSY
     Dosage: 25 MG MILLIGRAM(S), 1 IN 1 D, ORAL, 450 MG MILLIGRAM(S), 1 IN 1 D, ORAL
     Route: 048
     Dates: start: 20040801
  9. TEGRETOL [Suspect]
     Indication: EPILEPSY
     Dosage: 600 MG MILLIGRAM(S), 1 IN 1 D, ORAL
     Route: 048
     Dates: start: 20010221, end: 20020702
  10. ANTIEPILEPTICS (ANTIEPILEPTICS) [Concomitant]
  11. TOPREC (KETOPROFEN) [Concomitant]

REACTIONS (4)
  - CALCULUS BLADDER [None]
  - CHRONIC HEPATITIS [None]
  - AGITATION [None]
  - AGGRESSION [None]
